FAERS Safety Report 15206474 (Version 2)
Quarter: 2019Q2

REPORT INFORMATION
  Report Type: Spontaneous
  Country: GB (occurrence: GB)
  Receive Date: 20180727
  Receipt Date: 20190610
  Transmission Date: 20190711
  Serious: Yes (Hospitalization, Other)
  Sender: FDA-Public Use
  Company Number: GB-STRIDES ARCOLAB LIMITED-2018SP006287

PATIENT
  Age: 4 Year
  Sex: Female

DRUGS (1)
  1. IBUPROFEN. [Suspect]
     Active Substance: IBUPROFEN
     Indication: VARICELLA
     Dosage: UNKNOWN
     Route: 065

REACTIONS (8)
  - Pain [Recovered/Resolved]
  - Rash [Recovered/Resolved]
  - Necrotising fasciitis [Recovered/Resolved]
  - Tachycardia [Recovered/Resolved]
  - Erythema [Recovered/Resolved]
  - Scab [Recovered/Resolved]
  - Pyrexia [Recovered/Resolved]
  - Skin discolouration [Recovered/Resolved]
